FAERS Safety Report 18622086 (Version 6)
Quarter: 2022Q2

REPORT INFORMATION
  Report Type: Report from Study
  Country: US (occurrence: US)
  Receive Date: 20201216
  Receipt Date: 20220603
  Transmission Date: 20220721
  Serious: Yes (Hospitalization, Other)
  Sender: FDA-Public Use
  Company Number: US-TAKEDA-US202030515

PATIENT
  Sex: Male
  Weight: 79 kg

DRUGS (31)
  1. HUMAN IMMUNOGLOBULIN G [Suspect]
     Active Substance: HUMAN IMMUNOGLOBULIN G
     Indication: Immunodeficiency common variable
     Dosage: 7.5 GRAM 1/WEEK
     Route: 058
     Dates: start: 20160130
  2. HUMAN IMMUNOGLOBULIN G [Suspect]
     Active Substance: HUMAN IMMUNOGLOBULIN G
     Indication: Primary immunodeficiency syndrome
     Dosage: 7.5 GRAM, 1/WEEK
     Route: 058
     Dates: start: 20170308
  3. HUMAN IMMUNOGLOBULIN G [Suspect]
     Active Substance: HUMAN IMMUNOGLOBULIN G
     Dosage: 7.5 GRAM, 1/WEEK
     Route: 058
     Dates: start: 20180107
  4. CRESTOR [Concomitant]
     Active Substance: ROSUVASTATIN CALCIUM
     Dosage: UNK
     Route: 065
  5. DIETARY SUPPLEMENT\RESVERATROL [Concomitant]
     Active Substance: DIETARY SUPPLEMENT\RESVERATROL
     Dosage: UNK
     Route: 065
  6. FISH OIL [Concomitant]
     Active Substance: FISH OIL
     Dosage: UNK
     Route: 065
  7. KEPPRA [Concomitant]
     Active Substance: LEVETIRACETAM
     Dosage: UNK
     Route: 065
  8. ASPIRIN [Concomitant]
     Active Substance: ASPIRIN
     Dosage: UNK
     Route: 065
  9. XOPENEX [Concomitant]
     Active Substance: LEVALBUTEROL HYDROCHLORIDE
     Dosage: UNK
     Route: 065
  10. IBUPROFEN [Concomitant]
     Active Substance: IBUPROFEN
     Dosage: UNK
     Route: 065
  11. LEVOTHYROXINE [Concomitant]
     Active Substance: LEVOTHYROXINE
     Dosage: UNK
     Route: 065
  12. VITAMINS NOS [Concomitant]
     Active Substance: VITAMINS
     Dosage: UNK
     Route: 065
  13. VITAMIN D3 [Concomitant]
     Active Substance: CHOLECALCIFEROL
     Dosage: UNK
     Route: 065
  14. COENZYME Q10 [Concomitant]
     Active Substance: DIETARY SUPPLEMENT\UBIDECARENONE
     Dosage: UNK
     Route: 065
  15. SAW PALMETTO BERRY [Concomitant]
     Dosage: UNK
     Route: 065
  16. PRILOSEC [Concomitant]
     Active Substance: OMEPRAZOLE MAGNESIUM
     Dosage: UNK
     Route: 065
  17. DIPHENHYDRAMINE [Concomitant]
     Active Substance: DIPHENHYDRAMINE
     Dosage: UNK
     Route: 065
  18. LIDOCAINE\PRILOCAINE [Concomitant]
     Active Substance: LIDOCAINE\PRILOCAINE
     Dosage: UNK
     Route: 065
  19. EPINEPHRINE [Concomitant]
     Active Substance: EPINEPHRINE
     Dosage: UNK
     Route: 065
  20. FLONASE [Concomitant]
     Active Substance: FLUTICASONE PROPIONATE
     Dosage: UNK
     Route: 065
  21. LUTEIN-ZEAXANTHIN [Concomitant]
     Dosage: UNK
     Route: 065
  22. LEVETIRACETAM [Concomitant]
     Active Substance: LEVETIRACETAM
     Dosage: UNK
     Route: 065
  23. VITAMIN B12 [Concomitant]
     Active Substance: CYANOCOBALAMIN
     Dosage: UNK
     Route: 065
  24. FOLIC ACID [Concomitant]
     Active Substance: FOLIC ACID
     Dosage: UNK
     Route: 065
  25. VITAMIN B [Concomitant]
     Active Substance: VITAMIN B
  26. OMEPRAZOLE [Concomitant]
     Active Substance: OMEPRAZOLE
  27. FAMOTIDINE [Concomitant]
     Active Substance: FAMOTIDINE
  28. OCUVITE [Concomitant]
     Active Substance: VITAMINS
  29. CULTURELLE [Concomitant]
     Active Substance: LACTOBACILLUS RHAMNOSUS
  30. TART CHERRY [Concomitant]
  31. TYLENOL [Concomitant]
     Active Substance: ACETAMINOPHEN

REACTIONS (26)
  - COVID-19 [Unknown]
  - Epilepsy [Unknown]
  - Endodontic procedure [Unknown]
  - Gallbladder disorder [Unknown]
  - Gallbladder operation [Unknown]
  - Blepharitis [Unknown]
  - Eyelid infection [Unknown]
  - Arthropod bite [Unknown]
  - Musculoskeletal discomfort [Unknown]
  - Herpes simplex [Unknown]
  - Prostatitis [Unknown]
  - Hordeolum [Unknown]
  - Upper-airway cough syndrome [Unknown]
  - Meibomian gland dysfunction [Unknown]
  - Chalazion [Unknown]
  - Eye infection [Unknown]
  - Tooth disorder [Unknown]
  - Anaemia [Unknown]
  - Conjunctivitis [Unknown]
  - Pain [Unknown]
  - Pyrexia [Unknown]
  - Pruritus [Unknown]
  - Urticaria [Unknown]
  - Insomnia [Unknown]
  - Back pain [Unknown]
  - Chronic fatigue syndrome [Unknown]

NARRATIVE: CASE EVENT DATE: 20200101
